FAERS Safety Report 25434240 (Version 1)
Quarter: 2025Q2

REPORT INFORMATION
  Report Type: Spontaneous
  Country: US (occurrence: US)
  Receive Date: 20250613
  Receipt Date: 20250613
  Transmission Date: 20250717
  Serious: No
  Sender: TEVA
  Company Number: US-TEVA-VS-3340665

PATIENT

DRUGS (1)
  1. CARBIDOPA AND LEVODOPA [Suspect]
     Active Substance: CARBIDOPA\LEVODOPA
     Indication: Product used for unknown indication
     Route: 048

REACTIONS (19)
  - Tremor [Unknown]
  - Anxiety [Unknown]
  - Peripheral coldness [Unknown]
  - Headache [Unknown]
  - Gait inability [Unknown]
  - Grief reaction [Unknown]
  - Dry mouth [Unknown]
  - Flushing [Unknown]
  - Musculoskeletal stiffness [Unknown]
  - Discomfort [Unknown]
  - Cold sweat [Unknown]
  - Crying [Unknown]
  - Therapeutic response shortened [Unknown]
  - Adverse drug reaction [Unknown]
  - Hypoaesthesia [Unknown]
  - Dizziness [Unknown]
  - Muscle spasms [Unknown]
  - Thinking abnormal [Unknown]
  - Panic attack [Unknown]
